FAERS Safety Report 7607189 (Version 4)
Quarter: 2016Q2

REPORT INFORMATION
  Report Type: Report from Study
  Country: BR (occurrence: BR)
  Receive Date: 20100927
  Receipt Date: 20160427
  Transmission Date: 20160815
  Serious: Yes (Life-Threatening, Hospitalization, Disabling, Other)
  Sender: FDA-Public Use
  Company Number: PHHO2010BR14435

PATIENT
  Age: 70 Year
  Sex: Male
  Weight: 89.5 kg

DRUGS (1)
  1. ALISKIREN [Suspect]
     Active Substance: ALISKIREN
     Indication: CARDIAC FAILURE
     Dosage: 300 MG, UNK
     Route: 048
     Dates: start: 20100324, end: 20100914

REACTIONS (9)
  - Angina pectoris [Recovered/Resolved]
  - Septic shock [Recovered/Resolved]
  - Delirium [Recovered/Resolved]
  - Coronary artery disease [Recovered/Resolved]
  - Concomitant disease progression [Recovered/Resolved]
  - Pneumonia [Recovered/Resolved]
  - Left ventricular dysfunction [Recovered/Resolved]
  - Myocardial ischaemia [Recovered/Resolved]
  - Peptic ulcer perforation [Recovered/Resolved]

NARRATIVE: CASE EVENT DATE: 20100523
